FAERS Safety Report 9753169 (Version 1)
Quarter: 2013Q4

REPORT INFORMATION
  Report Type: Spontaneous
  Country: US (occurrence: US)
  Receive Date: 20131213
  Receipt Date: 20131213
  Transmission Date: 20140711
  Serious: No
  Sender: FDA-Public Use
  Company Number: US-GILEAD-2010-0026834

PATIENT
  Sex: Male
  Weight: 83.01 kg

DRUGS (10)
  1. LETAIRIS [Suspect]
     Indication: PULMONARY ARTERIAL HYPERTENSION
     Route: 048
     Dates: start: 20091112
  2. SUPRAX [Concomitant]
  3. REVATIO [Concomitant]
  4. CLONAZEPAM [Concomitant]
  5. ASPIRIN [Concomitant]
  6. VITAMIN D [Concomitant]
  7. ADVAIR [Concomitant]
  8. LEXAPRO [Concomitant]
  9. DIGOXIN [Concomitant]
  10. LEVOTHYROXINE [Concomitant]

REACTIONS (2)
  - Diarrhoea [Unknown]
  - Abdominal pain upper [Unknown]
